FAERS Safety Report 8862808 (Version 1)
Quarter: 2012Q4

REPORT INFORMATION
  Report Type: 
  Country: CA (occurrence: CA)
  Receive Date: 20121026
  Receipt Date: 20121026
  Transmission Date: 20130627
  Serious: Yes (Other)
  Sender: FDA-Public Use
  Company Number: PHHY2007CA011831

PATIENT
  Age: 65 Year

DRUGS (2)
  1. SANDOSTATIN LAR [Suspect]
     Dates: start: 20060626
  2. SANDOSTATIN LAR [Suspect]
     Dates: start: 20070227

REACTIONS (10)
  - Blood pressure decreased [Unknown]
  - Pyrexia [Unknown]
  - Weight decreased [Unknown]
  - Malaise [Unknown]
  - Secretion discharge [Recovering/Resolving]
  - Nausea [Unknown]
  - Vomiting [Recovering/Resolving]
  - Asthenia [Unknown]
  - Fatigue [Unknown]
  - Dehydration [Unknown]
